FAERS Safety Report 4463080-3 (Version None)
Quarter: 2004Q3

REPORT INFORMATION
  Report Type: 
  Country: None (occurrence: None)
  Receive Date: 20040928
  Receipt Date: 20040915
  Transmission Date: 20050211
  Serious: Yes (Hospitalization)
  Sender: FDA-Public Use
  Company Number: 209081

PATIENT
  Age: 59 Year
  Sex: Male
  Weight: 106.1 kg

DRUGS (7)
  1. AVASTIN [Suspect]
     Indication: HEPATIC NEOPLASM MALIGNANT
     Dosage: 10 MG/KG, Q2W, INTRAVENOUS
     Route: 042
     Dates: start: 20040825
  2. COMPAZINE [Concomitant]
  3. LEVOXYL [Concomitant]
  4. ATENOLOL [Concomitant]
  5. UNIVASC [Concomitant]
  6. MULTIVITAMIN (MULTIVITAMINS NOS) [Concomitant]
  7. ALEVE [Concomitant]

REACTIONS (4)
  - CONFUSIONAL STATE [None]
  - HYPERCALCAEMIA [None]
  - PANCREATITIS [None]
  - URINARY TRACT INFECTION [None]
